FAERS Safety Report 9263206 (Version 1)
Quarter: 2013Q2

REPORT INFORMATION
  Report Type: Spontaneous
  Country: US (occurrence: US)
  Receive Date: 20130430
  Receipt Date: 20130430
  Transmission Date: 20140414
  Serious: Yes (Other)
  Sender: FDA-Public Use
  Company Number: US-ROCHE-772882

PATIENT
  Sex: Male
  Weight: 70.8 kg

DRUGS (3)
  1. ACCUTANE [Suspect]
     Indication: ACNE
     Route: 048
  2. ACCUTANE [Suspect]
     Route: 048
  3. ACCUTANE [Suspect]
     Route: 048
     Dates: start: 199907, end: 200010

REACTIONS (6)
  - Crohn^s disease [Unknown]
  - Inflammatory bowel disease [Unknown]
  - Colitis ulcerative [Unknown]
  - Depression [Unknown]
  - Suicidal ideation [Unknown]
  - Irritable bowel syndrome [Unknown]
